FAERS Safety Report 15111755 (Version 1)
Quarter: 2018Q3

REPORT INFORMATION
  Report Type: Report from Study
  Country: DE (occurrence: DE)
  Receive Date: 20180705
  Receipt Date: 20180705
  Transmission Date: 20181010
  Serious: Yes (Congenital Anomaly)
  Sender: FDA-Public Use
  Company Number: DE-TEVA-2018-DE-919876

PATIENT
  Sex: Female

DRUGS (4)
  1. LAMOTRIGINE. [Concomitant]
     Active Substance: LAMOTRIGINE
     Dosage: EXPOSURE DURATION: 0?38+2 WEEKS
     Route: 064
  2. METOPROLOL. [Concomitant]
     Active Substance: METOPROLOL
     Dosage: EXPOSURE DURATION: 4+2?16+2 WEEKS
     Route: 064
  3. RAMIPRIL. [Suspect]
     Active Substance: RAMIPRIL
     Indication: HYPERTENSION
     Dosage: EXPOSURE DURATION: 0?4+1 WEEKS
     Route: 064
  4. METHYLDOPA. [Concomitant]
     Active Substance: METHYLDOPA
     Dosage: EXPOSURE DURATION: 16+2?38+2 WEEKS
     Route: 064

REACTIONS (5)
  - Patent ductus arteriosus [Unknown]
  - Foetal exposure during pregnancy [Unknown]
  - Ventricular septal defect [Unknown]
  - Congenital choroid plexus cyst [Unknown]
  - Atrial septal defect [Unknown]
